FAERS Safety Report 8599413-6 (Version None)
Quarter: 2012Q3

REPORT INFORMATION
  Report Type: 
  Country: None (occurrence: None)
  Receive Date: 20120816
  Receipt Date: 20120807
  Transmission Date: 20120928
  Serious: Yes (Other)
  Sender: FDA-Public Use
  Company Number: US-JNJFOC-20120805167

PATIENT

DRUGS (8)
  1. BORTEZOMIB [Suspect]
     Indication: ACUTE LYMPHOCYTIC LEUKAEMIA
     Dosage: 1.3 MG/SQ.M/DOSE ON DAYS 1, 4, 8 AND 11 COMBINED WITH VXLD
     Route: 042
  2. VINCRISTINE [Suspect]
     Indication: ACUTE LYMPHOCYTIC LEUKAEMIA
     Dosage: 1.5 MG/M2/DOSE, MAX. 2 MG, BY PUSH ON DAYS 1, 8, 15 AND 22
     Route: 042
  3. ASPARAGINASE [Suspect]
     Indication: ACUTE LYMPHOCYTIC LEUKAEMIA
     Dosage: 2500 UNITS/M2/DOSE AS 4 WEEKLY DOSES
     Route: 030
  4. METHOTREXATE [Suspect]
     Indication: ACUTE LYMPHOCYTIC LEUKAEMIA
     Dosage: 1 DOSE ON DAY 15 FOR NO CNS INVOLVEMENT AND ON DAYS 8, 15, 22 FOR CNS INVOLVEMENT
     Route: 037
  5. HYDROCORTISONE [Suspect]
     Indication: ACUTE LYMPHOCYTIC LEUKAEMIA
     Dosage: ON DAYS 8, 15 AND 22
     Route: 037
  6. DOXORUBICIN HYDROCHLORIDE [Suspect]
     Indication: ACUTE LYMPHOCYTIC LEUKAEMIA
     Dosage: GIVEN OVER 15-30 MINUTES ON DAY 1
     Route: 042
  7. CYTARABINE [Suspect]
     Indication: ACUTE LYMPHOCYTIC LEUKAEMIA
     Dosage: ON DAY 1 FOR ALL PATIENTS AND ON DAYS 8, 15, 22 FOR CNS INVLOVMENT
     Route: 037
  8. DEXAMETHASONE [Suspect]
     Indication: ACUTE LYMPHOCYTIC LEUKAEMIA
     Dosage: 10 MG/M2/DAY DIVIDED IN TO 2 DOSES FOR 14 CONSECUTIVE DAYS
     Route: 048

REACTIONS (4)
  - ESCHERICHIA SEPSIS [None]
  - OFF LABEL USE [None]
  - LOWER GASTROINTESTINAL HAEMORRHAGE [None]
  - COAGULOPATHY [None]
